FAERS Safety Report 4681355-X (Version None)
Quarter: 2005Q2

REPORT INFORMATION
  Report Type: 
  Country: None (occurrence: None)
  Receive Date: 20050601
  Receipt Date: 20050520
  Transmission Date: 20051028
  Serious: Yes (Hospitalization)
  Sender: FDA-Public Use
  Company Number: TPA2003A00791

PATIENT
  Age: 58 Year
  Sex: Male
  Weight: 117 kg

DRUGS (18)
  1. GLIPIZIDE [Suspect]
     Indication: DIABETES MELLITUS NON-INSULIN-DEPENDENT
     Dosage: PER ORAL
     Route: 048
     Dates: start: 20030301
  2. METOPROLOL TARTRATE [Concomitant]
  3. ISORDIL [Concomitant]
  4. HYDRALAZINE HCL [Concomitant]
  5. TORSEMIDE (TORASEMIDE) [Concomitant]
  6. INSULIN (INSULIN    / N/ A/) [Concomitant]
  7. SIMVASTATIN [Concomitant]
  8. RABEPRAZOLE SODIUM [Concomitant]
  9. GUAIFENESIN (GUAIFENESIN) [Concomitant]
  10. GABAPENTIN [Concomitant]
  11. PSEUDOEPHEDRINE HCL [Concomitant]
  12. DULCOLAX [Concomitant]
  13. TEMAZEPAM [Concomitant]
  14. SEREVENT [Concomitant]
  15. COMBIVENT [Concomitant]
  16. FEXOFENADINE HCL [Concomitant]
  17. DIGOXIN [Concomitant]
  18. SERTRALINE HCL [Concomitant]

REACTIONS (3)
  - ACUTE SINUSITIS [None]
  - CARDIAC FAILURE CONGESTIVE [None]
  - CONDITION AGGRAVATED [None]
